FAERS Safety Report 6934462-2 (Version None)
Quarter: 2010Q3

REPORT INFORMATION
  Report Type: 
  Country: None (occurrence: None)
  Receive Date: 20100820
  Receipt Date: 20100813
  Transmission Date: 20110219
  Serious: Yes (Hospitalization)
  Sender: FDA-Public Use
  Company Number: US-BAYER-201019158BCC

PATIENT
  Age: 22 Year
  Sex: Female

DRUGS (1)
  1. MIDOL [Suspect]
     Indication: PREMENSTRUAL SYNDROME
     Route: 048

REACTIONS (3)
  - DYSMENORRHOEA [None]
  - HYPERPYREXIA [None]
  - PAIN [None]
